FAERS Safety Report 8031874-3 (Version None)
Quarter: 2012Q1

REPORT INFORMATION
  Report Type: 
  Country: None (occurrence: None)
  Receive Date: 20120109
  Receipt Date: 20120104
  Transmission Date: 20120608
  Serious: Yes (Life-Threatening, Hospitalization)
  Sender: FDA-Public Use
  Company Number: CH-ASTRAZENECA-2012SE00526

PATIENT
  Age: 57 Year
  Sex: Male
  Weight: 99 kg

DRUGS (7)
  1. BYETTA [Suspect]
     Indication: TYPE 2 DIABETES MELLITUS
     Route: 058
     Dates: start: 20081001, end: 20111101
  2. LISTRIL [Concomitant]
     Indication: HYPERTENSIVE HEART DISEASE
     Route: 048
     Dates: start: 20080101
  3. ATACAND [Suspect]
     Indication: HYPERTENSIVE HEART DISEASE
     Route: 048
     Dates: start: 20050101
  4. AMLODIPINE [Suspect]
     Route: 048
  5. METFORMIN HCL [Concomitant]
     Indication: TYPE 2 DIABETES MELLITUS
     Route: 048
     Dates: start: 20050101
  6. CARVEDILOL [Concomitant]
     Indication: HYPERTENSIVE HEART DISEASE
     Route: 048
     Dates: start: 20050101
  7. ASPIRIN [Concomitant]
     Indication: CEREBROVASCULAR DISORDER
     Route: 048
     Dates: start: 20050101

REACTIONS (1)
  - B-CELL LYMPHOMA STAGE IV [None]
